FAERS Safety Report 7074271-X (Version None)
Quarter: 2010Q4

REPORT INFORMATION
  Report Type: 
  Country: None (occurrence: None)
  Receive Date: 20101029
  Receipt Date: 20101022
  Transmission Date: 20110411
  Serious: Yes (Death)
  Sender: FDA-Public Use
  Company Number: US-JNJCH-2008000956

PATIENT
  Age: 29 Year
  Sex: Female

DRUGS (2)
  1. DEXTROMETHORPHAN [Suspect]
     Dosage: TEXT:UNKNOWN
     Route: 048
  2. COUGH AND COLD PREPARATIONS [Suspect]
     Dosage: TEXT:UNKNOWN
     Route: 048

REACTIONS (2)
  - DRUG TOXICITY [None]
  - MEDICATION ERROR [None]
